FAERS Safety Report 9996460 (Version 1)
Quarter: 2014Q1

REPORT INFORMATION
  Report Type: Spontaneous
  Country: PT (occurrence: PT)
  Receive Date: 20140311
  Receipt Date: 20140311
  Transmission Date: 20141002
  Serious: Yes (Hospitalization, Other)
  Sender: FDA-Public Use
  Company Number: PT-ELI_LILLY_AND_COMPANY-PT201403001192

PATIENT
  Age: 52 Year
  Sex: Male
  Weight: 64 kg

DRUGS (7)
  1. ALIMTA [Suspect]
     Indication: NON-SMALL CELL LUNG CANCER
     Dosage: UNK, UNKNOWN
     Route: 042
  2. ALIMTA [Suspect]
     Dosage: 580 MG, CYCLICAL
     Route: 042
     Dates: start: 20130422, end: 20131104
  3. ALIMTA [Suspect]
     Dosage: 580 MG, CYCLICAL
     Route: 042
  4. CISPLATINA [Concomitant]
  5. ONDANSETRON [Concomitant]
  6. DEXAMETASONA                       /00016001/ [Concomitant]
  7. CIANOCOBALAMINA [Concomitant]

REACTIONS (5)
  - Hyperkalaemia [Recovering/Resolving]
  - Hypertension [Recovering/Resolving]
  - Renal failure acute [Not Recovered/Not Resolved]
  - Anaemia [Recovering/Resolving]
  - Malignant neoplasm progression [Not Recovered/Not Resolved]
